FAERS Safety Report 11342801 (Version 1)
Quarter: 2015Q3

REPORT INFORMATION
  Report Type: Spontaneous
  Country: FR (occurrence: FR)
  Receive Date: 20150805
  Receipt Date: 20150805
  Transmission Date: 20151125
  Serious: Yes (Other)
  Sender: FDA-Public Use
  Company Number: FR-FRESENIUS KABI-FK201503740

PATIENT
  Age: 51 Year
  Sex: Female

DRUGS (8)
  1. KETAMINE PANPHARMA [Suspect]
     Active Substance: KETAMINE
     Indication: MASTECTOMY
     Route: 042
     Dates: start: 20150710, end: 20150710
  2. DEXAMETHASONE MYLAN [Suspect]
     Active Substance: DEXAMETHASONE
     Indication: MASTECTOMY
     Route: 042
     Dates: start: 20150710, end: 20150710
  3. METHYLENE BLUE. [Suspect]
     Active Substance: METHYLENE BLUE
     Indication: MASTECTOMY
     Route: 065
  4. PROPOFOL 1% MCT FRESENIUS (PROPOFOL) (PROPOFOL) [Suspect]
     Active Substance: PROPOFOL
     Indication: MASTECTOMY
     Route: 042
     Dates: start: 20150710, end: 20150710
  5. SUFENTANIL MYLAN [Suspect]
     Active Substance: SUFENTANIL
     Indication: MASTECTOMY
     Route: 037
     Dates: start: 20150710, end: 20150710
  6. ATRACURIUM HOSPIRA [Suspect]
     Active Substance: ATRACURIUM
     Indication: MASTECTOMY
     Route: 042
     Dates: start: 20150710, end: 20150710
  7. EPHEDRINE AGUETTANT [Suspect]
     Active Substance: EPHEDRINE
     Indication: MASTECTOMY
     Route: 042
     Dates: start: 20150710, end: 20150710
  8. CEFAZOLINE MYLAN [Suspect]
     Active Substance: CEFAZOLIN SODIUM
     Indication: MASTECTOMY
     Route: 042
     Dates: start: 20150710, end: 20150710

REACTIONS (2)
  - Hypotension [Recovered/Resolved]
  - Anaphylactic shock [Recovered/Resolved]

NARRATIVE: CASE EVENT DATE: 20150710
